FAERS Safety Report 21158154 (Version 3)
Quarter: 2022Q3

REPORT INFORMATION
  Report Type: Report from Study
  Country: FR (occurrence: FR)
  Receive Date: 20220801
  Receipt Date: 20220818
  Transmission Date: 20221026
  Serious: Yes (Hospitalization, Disabling, Other)
  Sender: FDA-Public Use
  Company Number: FR-BRISTOL-MYERS SQUIBB COMPANY-2022-082158

PATIENT
  Age: 71 Year
  Sex: Male
  Weight: 99 kg

DRUGS (12)
  1. DOCETAXEL [Suspect]
     Active Substance: DOCETAXEL
     Indication: Hormone-refractory prostate cancer
     Route: 065
     Dates: start: 20210616
  2. DOCETAXEL [Suspect]
     Active Substance: DOCETAXEL
     Route: 065
     Dates: start: 20211222
  3. RACECADOTRIL [Concomitant]
     Active Substance: RACECADOTRIL
     Indication: Diarrhoea
     Dosage: ONGOING
     Route: 048
     Dates: start: 20210707
  4. DOLIPRANE [Concomitant]
     Active Substance: ACETAMINOPHEN
     Indication: Product used for unknown indication
     Dosage: ONGOING
     Route: 048
     Dates: start: 20211110
  5. SMECTA [Concomitant]
     Active Substance: MONTMORILLONITE
     Indication: Diarrhoea
     Dosage: ONGOING
     Route: 048
     Dates: start: 20210707
  6. INNOHEP [Concomitant]
     Active Substance: TINZAPARIN SODIUM
     Indication: Dyspnoea
     Dosage: ONGOING
     Route: 042
     Dates: start: 20210802
  7. DISOPRONE 0.05% [Concomitant]
     Indication: Product used for unknown indication
     Dosage: ONGOING
     Route: 061
     Dates: start: 20220112
  8. GLYCEROL VASELINE PARAFFINE [Concomitant]
     Indication: Product used for unknown indication
     Dosage: ONGOING,
     Route: 061
     Dates: start: 20220112
  9. PREDNISONE [Concomitant]
     Active Substance: PREDNISONE
     Indication: Hormone-refractory prostate cancer
     Route: 065
     Dates: start: 20210616
  10. PREDNISONE [Concomitant]
     Active Substance: PREDNISONE
     Route: 065
     Dates: start: 20211222
  11. LOVENOX [Concomitant]
     Active Substance: ENOXAPARIN SODIUM
     Indication: Prophylaxis
     Dosage: ONGOING
     Route: 058
     Dates: start: 20190101
  12. ELIQUIS [Concomitant]
     Active Substance: APIXABAN
     Indication: Prophylaxis
     Dosage: ONGOING
     Route: 048
     Dates: start: 20191001

REACTIONS (1)
  - Type 2 diabetes mellitus [Recovered/Resolved with Sequelae]

NARRATIVE: CASE EVENT DATE: 20220722
